FAERS Safety Report 4621564-9 (Version None)
Quarter: 2005Q1

REPORT INFORMATION
  Report Type: 
  Country: None (occurrence: None)
  Receive Date: 20050329
  Receipt Date: 20050315
  Transmission Date: 20050727
  Serious: Yes (Other)
  Sender: FDA-Public Use
  Company Number: 2005043443

PATIENT
  Age: 82 Year
  Sex: Female
  Weight: 68.9467 kg

DRUGS (7)
  1. CELEBREX [Suspect]
     Indication: ARTHRITIS
     Dosage: 200 MG (200 MG, 1 IN 1 D), ORAL
     Route: 048
  2. NAPROXEN SODIUM [Suspect]
     Indication: ARTHRITIS
     Dosage: ORAL
     Route: 048
     Dates: start: 20050101, end: 20050101
  3. ASPIRIN [Concomitant]
  4. OL.MESARTAN MEDOXOMIL (OLMESARTAN MEDOXOMIL) [Concomitant]
  5. KARVEA HCT (HYDROCHLOROTHIAZIDE, IRBESARTAN) [Concomitant]
  6. ESOMEPRAZOLE (ESOMEPRAZOLE) [Concomitant]
  7. METOPROLOL TARTRATE [Concomitant]

REACTIONS (2)
  - CHONDROPATHY [None]
  - PAIN IN EXTREMITY [None]
